FAERS Safety Report 6809235-1 (Version None)
Quarter: 2010Q2

REPORT INFORMATION
  Report Type: 
  Country: None (occurrence: None)
  Receive Date: 20100625
  Receipt Date: 20100608
  Transmission Date: 20101027
  Serious: Yes (Other)
  Sender: FDA-Public Use
  Company Number: 20100255

PATIENT
  Age: 52 Year
  Sex: Female

DRUGS (1)
  1. EPINEPHRINE [Suspect]
     Indication: ANAPHYLACTIC REACTION
     Dosage: 0.3 MG (1:1000) INTRAVENOUS
     Route: 042

REACTIONS (5)
  - ANGINA PECTORIS [None]
  - DRUG PRESCRIBING ERROR [None]
  - ELECTROCARDIOGRAM ST SEGMENT ELEVATION [None]
  - INCORRECT DOSE ADMINISTERED [None]
  - INCORRECT ROUTE OF DRUG ADMINISTRATION [None]
